FAERS Safety Report 8235657-0 (Version None)
Quarter: 2012Q1

REPORT INFORMATION
  Report Type: 
  Country: None (occurrence: None)
  Receive Date: 20120323
  Receipt Date: 20120314
  Transmission Date: 20120608
  Serious: Yes (Death, Hospitalization, Disabling)
  Sender: FDA-Public Use
  Company Number: AUR-APL-2012-01415

PATIENT
  Age: 80 Year
  Sex: Female
  Weight: 33 kg

DRUGS (7)
  1. CITALOPRAM HYDROBROMIDE [Suspect]
     Indication: DEPRESSION
     Dosage: (20 MG), ORAL
     Route: 048
     Dates: start: 20101207
  2. ASPIRIN [Suspect]
     Indication: PRODUCT USED FOR UNKNOWN INDICATION
     Dosage: (75 MG), ORAL
     Route: 048
  3. CALCICHEW D3 (LEKOVIT CA) [Concomitant]
  4. NUTRITIONAL SUPPLEMENT (FOLLICARE NUTRITIONAL SUPPLEMENT) [Concomitant]
  5. DONEPEZIL HCL [Suspect]
     Indication: DEMENTIA ALZHEIMER'S TYPE
     Dosage: (10 MG), ORAL
     Route: 048
     Dates: start: 20110407
  6. CODEINE PHOSPHATE (CODEINE PHOSPHATE) [Concomitant]
  7. RISEDRONATE SODIUM [Concomitant]

REACTIONS (2)
  - GASTROINTESTINAL HAEMORRHAGE [None]
  - GASTRIC ULCER [None]
